FAERS Safety Report 26126402 (Version 1)
Quarter: 2025Q4

REPORT INFORMATION
  Report Type: Spontaneous
  Country: EU (occurrence: EU)
  Receive Date: 20251205
  Receipt Date: 20251205
  Transmission Date: 20260117
  Serious: Yes (Other)
  Sender: PURDUE
  Company Number: EU-SUN PHARMACEUTICAL INDUSTRIES LTD-2025RR-537871

PATIENT
  Age: 70 Year
  Sex: Male

DRUGS (3)
  1. BUPRENORPHINE [Interacting]
     Active Substance: BUPRENORPHINE
     Indication: Phantom limb syndrome
     Dosage: 35 MICROGRAM PER H PER 72HOURS
     Route: 062
  2. PREGABALIN [Interacting]
     Active Substance: PREGABALIN
     Indication: Phantom limb syndrome
     Dosage: 75 MILLIGRAM, DAILY
     Route: 065
  3. HYDROXYZINE [Interacting]
     Active Substance: HYDROXYZINE HYDROCHLORIDE
     Indication: Phantom limb syndrome
     Dosage: 50 MILLIGRAM, DAILY
     Route: 065

REACTIONS (3)
  - Amputation stump pain [Not Recovered/Not Resolved]
  - Dysaesthesia [Not Recovered/Not Resolved]
  - Drug interaction [Not Recovered/Not Resolved]
